FAERS Safety Report 5905147-6 (Version None)
Quarter: 2008Q4

REPORT INFORMATION
  Report Type: 
  Country: None (occurrence: None)
  Receive Date: 20081001
  Receipt Date: 20080923
  Transmission Date: 20090506
  Serious: Yes (Hospitalization)
  Sender: FDA-Public Use
  Company Number: US-PURDUE-USA_2008_0034913

PATIENT
  Sex: Female

DRUGS (3)
  1. MORPHINE SULFATE [Suspect]
     Indication: CANCER PAIN
     Dosage: 100 MG, HS
     Dates: start: 20080801
  2. OXYCONTIN [Suspect]
     Indication: CANCER PAIN
     Dosage: 60 MG, BID
     Route: 048
     Dates: start: 20080401, end: 20080801
  3. MORPHINE SULFATE [Suspect]
     Dosage: 60 MG, PRN

REACTIONS (6)
  - DRUG EFFECT DECREASED [None]
  - DRUG INEFFECTIVE [None]
  - GASTRIC DISORDER [None]
  - INTESTINAL OBSTRUCTION [None]
  - NAUSEA [None]
  - VOMITING [None]
